FAERS Safety Report 9958985 (Version 2)
Quarter: 2014Q1

REPORT INFORMATION
  Report Type: Report from Study
  Country: US (occurrence: US)
  Receive Date: 20140305
  Receipt Date: 20140305
  Transmission Date: 20141002
  Serious: Yes (Hospitalization)
  Sender: FDA-Public Use
  Company Number: US-ABBVIE-13P-163-1098846-00

PATIENT
  Age: 46 Year
  Sex: Female

DRUGS (23)
  1. HUMIRA [Suspect]
     Indication: CROHN^S DISEASE
     Dates: start: 20130415, end: 20130415
  2. HUMIRA [Suspect]
     Dates: start: 20130429, end: 20130429
  3. HUMIRA [Suspect]
  4. METHOTREXATE [Concomitant]
     Indication: PROPHYLAXIS
     Dates: start: 20130412
  5. METHOTREXATE [Concomitant]
     Indication: ADVERSE DRUG REACTION
  6. CRESTOR [Concomitant]
     Indication: BLOOD CHOLESTEROL
  7. CELEXA [Concomitant]
     Indication: ANXIETY
  8. FOLIC ACID [Concomitant]
     Indication: CROHN^S DISEASE
  9. ACYCLOVIR [Concomitant]
     Indication: GENITAL HERPES
  10. KLOR-CON [Concomitant]
     Indication: CROHN^S DISEASE
  11. LOSARTAN [Concomitant]
     Indication: HYPERTENSION
     Dosage: 50 MG DAILY
  12. MAG-OXIDE [Concomitant]
     Indication: CROHN^S DISEASE
  13. VITAMIN B-12 [Concomitant]
     Indication: CROHN^S DISEASE
  14. HUMALOG-SHORT ACTING [Concomitant]
     Indication: PRODUCT USED FOR UNKNOWN INDICATION
     Dosage: SLIDING SCALE (3-4) TIMES PER DAY
  15. LANTUS-LONG ACTING [Concomitant]
     Indication: PRODUCT USED FOR UNKNOWN INDICATION
     Dosage: AT BEDTIME
  16. NORCO [Concomitant]
     Indication: POST-THORACOTOMY PAIN SYNDROME
     Dosage: 5/325 MG (1-2 AS NEEDED) AT BEDTIME
  17. XANAX [Concomitant]
     Indication: INSOMNIA
     Dosage: AT BEDTIME
  18. OXYGEN [Concomitant]
     Indication: INSOMNIA
     Dosage: 4-6 LITERS DURING THE DAY
  19. OXYGEN [Concomitant]
     Dosage: 10 LITERS WITH CPAP AT BEDTIME
  20. PREDNISONE [Concomitant]
     Indication: CROHN^S DISEASE
     Dosage: 15 MG DAILY
  21. PREDNISONE [Concomitant]
     Indication: LUNG DISORDER
  22. ZYRTEC [Concomitant]
     Indication: HYPERSENSITIVITY
     Dosage: 10 MG DAILY
  23. CLARITIN [Concomitant]
     Indication: HYPERSENSITIVITY
     Dosage: 10 MG DAILY

REACTIONS (10)
  - Pyrexia [Unknown]
  - Drug ineffective [Unknown]
  - Diarrhoea [Recovering/Resolving]
  - Crohn^s disease [Recovering/Resolving]
  - Abdominal pain [Unknown]
  - Nausea [Recovered/Resolved]
  - Vomiting [Recovering/Resolving]
  - Cough [Recovering/Resolving]
  - Nasopharyngitis [Recovering/Resolving]
  - Somnolence [Recovered/Resolved]
